FAERS Safety Report 21297952 (Version 1)
Quarter: 2022Q3

REPORT INFORMATION
  Report Type: Spontaneous
  Country: US (occurrence: None)
  Receive Date: 20220902
  Receipt Date: 20220902
  Transmission Date: 20221027
  Serious: No
  Sender: FDA-Public Use
  Company Number: None

PATIENT
  Age: 81 Year
  Sex: Female

DRUGS (1)
  1. OXCARBAZEPINE [Suspect]
     Active Substance: OXCARBAZEPINE
     Indication: Seizure
     Dosage: 150 MG BID PO?
     Route: 048
     Dates: start: 20220621, end: 20220629

REACTIONS (2)
  - Inappropriate antidiuretic hormone secretion [None]
  - Ischaemic stroke [None]

NARRATIVE: CASE EVENT DATE: 20220629
